FAERS Safety Report 4995030-5 (Version None)
Quarter: 2006Q2

REPORT INFORMATION
  Report Type: 
  Country: None (occurrence: None)
  Receive Date: 20060508
  Receipt Date: 20060411
  Transmission Date: 20061013
  Serious: Yes (Other)
  Sender: FDA-Public Use
  Company Number: CH-GLAXOSMITHKLINE-B0421126A

PATIENT
  Age: 14 Year
  Sex: Female
  Weight: 51.1 kg

DRUGS (4)
  1. LAMICTAL [Suspect]
     Indication: EPILEPSY
     Dosage: 100MG TWICE PER DAY
     Route: 048
     Dates: start: 20050301, end: 20051201
  2. SINGULAIR [Concomitant]
     Indication: ASTHMA
     Dosage: 5MG PER DAY
     Route: 048
  3. SYMBICORT [Concomitant]
     Indication: ASTHMA
  4. ORFIRIL LONG [Concomitant]
     Dosage: 300MG SINGLE DOSE

REACTIONS (3)
  - CHORIORETINITIS [None]
  - RETINAL DISORDER [None]
  - VOGT-KOYANAGI-HARADA SYNDROME [None]
